FAERS Safety Report 12213887 (Version 2)
Quarter: 2016Q2

REPORT INFORMATION
  Report Type: Spontaneous
  Country: US (occurrence: US)
  Receive Date: 20160328
  Receipt Date: 20160421
  Transmission Date: 20160815
  Serious: No
  Sender: FDA-Public Use
  Company Number: US-GLAXOSMITHKLINE-US2016039922

PATIENT
  Age: 60 Year
  Sex: Female

DRUGS (1)
  1. ALLI [Suspect]
     Active Substance: ORLISTAT
     Indication: WEIGHT DECREASED
     Dosage: 120CT, UNK
     Dates: start: 201602

REACTIONS (3)
  - Constipation [Not Recovered/Not Resolved]
  - Steatorrhoea [Recovered/Resolved]
  - Product quality issue [Unknown]
